FAERS Safety Report 10417779 (Version 1)
Quarter: 2014Q3

REPORT INFORMATION
  Report Type: Spontaneous
  Country: US (occurrence: US)
  Receive Date: 20140829
  Receipt Date: 20140829
  Transmission Date: 20150326
  Serious: Yes (Hospitalization)
  Sender: FDA-Public Use
  Company Number: US-009507513-1408USA013718

PATIENT
  Age: 33 Year
  Sex: Male
  Weight: 102.9 kg

DRUGS (7)
  1. EMEND [Suspect]
     Active Substance: APREPITANT
     Indication: PANCREATIC CARCINOMA
     Dosage: 150 MG (ALSO REPORTED AS ONE DOSE), ONCE
     Route: 042
     Dates: start: 20140818, end: 20140818
  2. CREON [Concomitant]
     Active Substance: PANCRELIPASE AMYLASE\PANCRELIPASE LIPASE\PANCRELIPASE PROTEASE
  3. P-COL [Concomitant]
     Dosage: UNK, BID
     Route: 048
  4. FENTANYL. [Concomitant]
     Active Substance: FENTANYL
     Dosage: 100 MICROGRAM, Q73HRS
     Route: 062
  5. DILAUDID [Concomitant]
     Active Substance: HYDROMORPHONE HYDROCHLORIDE
     Indication: PAIN
     Dosage: PAIN PUMP SLIDING SCALE, PRN
  6. FLUOROURACIL (+) IRINOTECAN HYDROCHLORIDE (+) LEUCOVORIN CALCIUM (+) O [Suspect]
     Active Substance: FLUOROURACIL\IRINOTECAN\LEUCOVORIN\OXALIPLATIN
     Dosage: ONE DOSE, AS PER STANDARD OF CARE
     Dates: start: 20140818, end: 20140818
  7. COMPAZINE [Concomitant]
     Active Substance: PROCHLORPERAZINE MALEATE
     Dosage: 40 MG, PRN
     Route: 048

REACTIONS (2)
  - Vomiting [Unknown]
  - Nausea [Unknown]

NARRATIVE: CASE EVENT DATE: 20140820
